FAERS Safety Report 8226953-1 (Version None)
Quarter: 2012Q1

REPORT INFORMATION
  Report Type: 
  Country: None (occurrence: None)
  Receive Date: 20120322
  Receipt Date: 20120314
  Transmission Date: 20120608
  Serious: Yes (Other)
  Sender: FDA-Public Use
  Company Number: TR-US-EMD SERONO, INC.-7060784

PATIENT
  Sex: Female

DRUGS (2)
  1. REBIF [Suspect]
     Indication: MULTIPLE SCLEROSIS
     Route: 058
     Dates: start: 20101011, end: 20110512
  2. EFFEXOR [Suspect]
     Indication: DEPRESSION

REACTIONS (2)
  - FOETAL EXPOSURE DURING PREGNANCY [None]
  - ABORTION SPONTANEOUS [None]
